FAERS Safety Report 9204839 (Version 1)
Quarter: 2013Q2

REPORT INFORMATION
  Report Type: Spontaneous
  Country: US (occurrence: US)
  Receive Date: 20130402
  Receipt Date: 20130402
  Transmission Date: 20140414
  Serious: No
  Sender: FDA-Public Use
  Company Number: US-009507513-1304USA000103

PATIENT
  Age: 75 Year
  Sex: Female

DRUGS (5)
  1. DULERA [Suspect]
     Indication: CARDIAC FAILURE CONGESTIVE
     Dosage: 2 PUFFS, BID
     Route: 055
     Dates: start: 20130326
  2. DULERA [Suspect]
     Indication: COUGH
  3. SYNTHROID [Concomitant]
  4. IBUPROFEN [Concomitant]
  5. VENTOLIN (ALBUTEROL SULFATE) [Concomitant]

REACTIONS (3)
  - Drug dose omission [Unknown]
  - Off label use [Unknown]
  - Product quality issue [Unknown]
